FAERS Safety Report 21651091 (Version 1)
Quarter: 2022Q4

REPORT INFORMATION
  Report Type: Spontaneous
  Country: US (occurrence: US)
  Receive Date: 20221128
  Receipt Date: 20221128
  Transmission Date: 20230113
  Serious: No
  Sender: FDA-Public Use
  Company Number: US-PFIZER INC-PV202200110512

PATIENT
  Age: 39 Year
  Sex: Male

DRUGS (7)
  1. EUCRISA [Suspect]
     Active Substance: CRISABOROLE
     Indication: Dyshidrotic eczema
     Dosage: UNK, 2X/DAY
  2. CLOBETASOL [Suspect]
     Active Substance: CLOBETASOL
     Dosage: UNK, 2X/DAY, APPLY THIN LAYER TO ECZEMATOUS PATCHES ON TRUNK AND EXTREMITIES TWICE DAILY, 2 WEEKS ON
     Route: 061
  3. TACROLIMUS [Suspect]
     Active Substance: TACROLIMUS
     Dosage: UNK, 2X/DAY, 30 DAYS, 1 APPLICATION(S) TOPICAL TO ARMS, LEGS AND BACK
  4. NAFTIN [Concomitant]
     Active Substance: NAFTIFINE HYDROCHLORIDE
     Dosage: UNK
     Route: 061
  5. TRIAMCINOLONE ACETONIDE [Concomitant]
     Active Substance: TRIAMCINOLONE ACETONIDE
     Dosage: UNK
     Route: 061
  6. BENTONITE [Concomitant]
     Active Substance: BENTONITE
     Dosage: UNK
  7. FLAXSEED [Concomitant]
     Active Substance: FLAX SEED
     Dosage: UNK

REACTIONS (3)
  - Condition aggravated [Unknown]
  - Drug ineffective for unapproved indication [Unknown]
  - Off label use [Unknown]
